FAERS Safety Report 12291450 (Version 10)
Quarter: 2021Q3

REPORT INFORMATION
  Report Type: Spontaneous
  Country: FR (occurrence: FR)
  Receive Date: 20160421
  Receipt Date: 20210913
  Transmission Date: 20211014
  Serious: Yes (Hospitalization, Disabling, Congenital Anomaly, Other)
  Sender: FDA-Public Use
  Company Number: FR-ABBVIE-16P-056-1610164-00

PATIENT
  Sex: Male
  Weight: 3.52 kg

DRUGS (6)
  1. DEPAKINE [Suspect]
     Active Substance: VALPROATE SODIUM
     Indication: MATERNAL EXPOSURE TIMING UNSPECIFIED
     Route: 064
  2. VALPROATE SODIUM. [Suspect]
     Active Substance: VALPROATE SODIUM
     Indication: MATERNAL EXPOSURE TIMING UNSPECIFIED
     Route: 064
  3. VALPROATE SODIUM. [Suspect]
     Active Substance: VALPROATE SODIUM
     Route: 064
  4. SPECIAFOLDINE [Concomitant]
     Active Substance: FOLIC ACID
     Indication: MATERNAL EXPOSURE TIMING UNSPECIFIED
     Route: 064
  5. VALIUM [Concomitant]
     Active Substance: DIAZEPAM
     Indication: MATERNAL EXPOSURE TIMING UNSPECIFIED
  6. MICROPAKINE [Suspect]
     Active Substance: VALPROATE SODIUM
     Indication: MATERNAL EXPOSURE TIMING UNSPECIFIED
     Route: 064

REACTIONS (56)
  - Dependence [Unknown]
  - Ataxia [Unknown]
  - Incontinence [Not Recovered/Not Resolved]
  - Faecaloma [Unknown]
  - Foot deformity [Unknown]
  - Hyperkeratosis [Unknown]
  - Talipes [Unknown]
  - Polydactyly [Unknown]
  - Intellectual disability [Unknown]
  - Reflexes abnormal [Unknown]
  - Cerumen impaction [Unknown]
  - Knee deformity [Unknown]
  - Foetal anticonvulsant syndrome [Unknown]
  - Use of accessory respiratory muscles [Unknown]
  - Developmental delay [Unknown]
  - Refraction disorder [Unknown]
  - Oesophagitis [Unknown]
  - Eyelid disorder [Unknown]
  - Hypotonia [Unknown]
  - Dysmorphism [Unknown]
  - Tooth malformation [Unknown]
  - Scoliosis [Unknown]
  - Respiratory distress [Recovered/Resolved]
  - Fall [Unknown]
  - Pectus excavatum [Unknown]
  - Gastrointestinal disorder [Unknown]
  - Prognathism [Unknown]
  - Dysplasia [Unknown]
  - Tachypnoea [Unknown]
  - Laryngitis [Unknown]
  - Head deformity [Unknown]
  - Limb malformation [Unknown]
  - Adjustment disorder [Unknown]
  - Visual impairment [Unknown]
  - Gastritis [Unknown]
  - Autism spectrum disorder [Not Recovered/Not Resolved]
  - Strabismus [Unknown]
  - Respiratory distress [Unknown]
  - Unevaluable event [Unknown]
  - Enuresis [Unknown]
  - Communication disorder [Unknown]
  - Cerebral ventricle dilatation [Unknown]
  - Constipation [Unknown]
  - Intellectual disability [Unknown]
  - Personality disorder [Unknown]
  - Foetal exposure during pregnancy [Unknown]
  - Hypoxia [Unknown]
  - Mental disorder [Not Recovered/Not Resolved]
  - Foot deformity [Unknown]
  - Psychomotor retardation [Unknown]
  - Plagiocephaly [Unknown]
  - Speech disorder [Unknown]
  - Epilepsy [Unknown]
  - Electroencephalogram abnormal [Unknown]
  - Encopresis [Unknown]
  - Eye disorder [Unknown]

NARRATIVE: CASE EVENT DATE: 1998
